FAERS Safety Report 23017649 (Version 1)
Quarter: 2023Q4

REPORT INFORMATION
  Report Type: Report from Study
  Country: US (occurrence: None)
  Receive Date: 20231003
  Receipt Date: 20231003
  Transmission Date: 20240109
  Serious: Yes (Life-Threatening, Hospitalization)
  Sender: FDA-Public Use
  Company Number: 2023A221869

PATIENT
  Sex: Female

DRUGS (2)
  1. TAGRISSO [Suspect]
     Active Substance: OSIMERTINIB
     Indication: Lung carcinoma cell type unspecified stage 0
     Route: 048
     Dates: start: 202303
  2. TAGRISSO [Suspect]
     Active Substance: OSIMERTINIB
     Indication: Lung carcinoma cell type unspecified stage 0
     Route: 048

REACTIONS (7)
  - Blood sodium decreased [Unknown]
  - Hypervolaemia [Unknown]
  - Arthralgia [Unknown]
  - Pain in extremity [Recovering/Resolving]
  - Onychoclasis [Unknown]
  - Nail disorder [Unknown]
  - Onychalgia [Unknown]
